FAERS Safety Report 8442920-7 (Version None)
Quarter: 2012Q2

REPORT INFORMATION
  Report Type: 
  Country: None (occurrence: None)
  Receive Date: 20120615
  Receipt Date: 20120613
  Transmission Date: 20120825
  Serious: Yes (Life-Threatening)
  Sender: FDA-Public Use
  Company Number: IT-ABBOTT-12P-083-0945865-00

PATIENT
  Sex: Male

DRUGS (12)
  1. APIDRA [Suspect]
     Indication: TYPE 1 DIABETES MELLITUS
     Dosage: ONCE
     Route: 058
     Dates: start: 20120523, end: 20120523
  2. HUMALOG [Suspect]
     Indication: SUICIDE ATTEMPT
     Dosage: ONCE
     Route: 058
     Dates: start: 20120523, end: 20120523
  3. APIDRA [Suspect]
     Indication: SUICIDE ATTEMPT
  4. DULOXETIME HYDROCHLORIDE [Suspect]
     Indication: PRODUCT USED FOR UNKNOWN INDICATION
     Dosage: ONCE
     Route: 048
     Dates: start: 20120523, end: 20120523
  5. DEPAKENE [Suspect]
     Indication: SUICIDE ATTEMPT
     Dosage: ONCE
     Route: 048
     Dates: start: 20120523, end: 20120523
  6. DULOXETIME HYDROCHLORIDE [Suspect]
     Indication: SUICIDE ATTEMPT
  7. LYRICA [Suspect]
     Indication: DIABETIC NEUROPATHY
     Dosage: ONCE
     Route: 048
     Dates: start: 20120523, end: 20120523
  8. TRAMADOL HCL [Suspect]
     Indication: SUICIDE ATTEMPT
     Dosage: ONCE
     Route: 048
     Dates: start: 20120523, end: 20120523
  9. LYRICA [Suspect]
     Indication: SUICIDE ATTEMPT
  10. OPTISET [Suspect]
     Indication: DEVICE THERAPY
     Dosage: 3 IN 1 DAY, ONCE
     Route: 065
     Dates: start: 20120523, end: 20120523
  11. VALIUM [Suspect]
     Indication: SUICIDE ATTEMPT
     Dosage: ONCE
     Route: 048
     Dates: start: 20120523, end: 20120523
  12. RAMIPRIL [Concomitant]
     Indication: PRODUCT USED FOR UNKNOWN INDICATION

REACTIONS (6)
  - HYPOGLYCAEMIA [None]
  - HYPOTENSION [None]
  - HYPOKINESIA [None]
  - INTENTIONAL OVERDOSE [None]
  - SUICIDE ATTEMPT [None]
  - SOPOR [None]
